FAERS Safety Report 21752679 (Version 1)
Quarter: 2022Q4

REPORT INFORMATION
  Report Type: Spontaneous
  Country: DE (occurrence: DE)
  Receive Date: 20221220
  Receipt Date: 20221220
  Transmission Date: 20230112
  Serious: Yes (Other)
  Sender: FDA-Public Use
  Company Number: DE-BRISTOL-MYERS SQUIBB COMPANY-2022-155403

PATIENT
  Age: 84 Year
  Sex: Female

DRUGS (1)
  1. ELIQUIS [Suspect]
     Active Substance: APIXABAN
     Indication: Cerebrovascular accident prophylaxis

REACTIONS (4)
  - Gastrointestinal ulcer [Unknown]
  - Peripheral swelling [Unknown]
  - Pain in extremity [Unknown]
  - Thrombosis [Unknown]

NARRATIVE: CASE EVENT DATE: 20220401
